FAERS Safety Report 5497452-5 (Version None)
Quarter: 2007Q4

REPORT INFORMATION
  Report Type: 
  Country: None (occurrence: None)
  Receive Date: 20071025
  Receipt Date: 20061121
  Transmission Date: 20080405
  Serious: No
  Sender: FDA-Public Use
  Company Number: A0627707A

PATIENT
  Sex: Male

DRUGS (2)
  1. ADVAIR DISKUS 100/50 [Suspect]
  2. SPIRIVA [Suspect]

REACTIONS (3)
  - DIZZINESS [None]
  - FEELING DRUNK [None]
  - SENSATION OF BLOOD FLOW [None]
